FAERS Safety Report 16299799 (Version 1)
Quarter: 2019Q2

REPORT INFORMATION
  Report Type: Spontaneous
  Country: FR (occurrence: FR)
  Receive Date: 20190510
  Receipt Date: 20190510
  Transmission Date: 20190711
  Serious: Yes (Other)
  Sender: FDA-Public Use
  Company Number: FR-TEVA-2019-FR-1047189

PATIENT
  Age: 70 Year
  Sex: Male

DRUGS (2)
  1. FLUOROURACILE [Suspect]
     Active Substance: FLUOROURACIL
     Indication: RECTAL CANCER
     Dosage: NON RENSEIGN?E
     Dates: start: 201803, end: 201809
  2. OXALIPLATINE [Suspect]
     Active Substance: OXALIPLATIN
     Indication: RECTAL CANCER
     Dosage: NON RENSEGIN?E
     Dates: start: 201803, end: 201809

REACTIONS (2)
  - Paraesthesia [Not Recovered/Not Resolved]
  - Neuropathy peripheral [Not Recovered/Not Resolved]

NARRATIVE: CASE EVENT DATE: 201812
